FAERS Safety Report 6433094-2 (Version None)
Quarter: 2009Q4

REPORT INFORMATION
  Report Type: 
  Country: None (occurrence: None)
  Receive Date: 20091105
  Receipt Date: 20091030
  Transmission Date: 20100525
  Serious: Yes (Hospitalization)
  Sender: FDA-Public Use
  Company Number: 2009SP020476

PATIENT
  Age: 63 Year
  Sex: Male

DRUGS (6)
  1. PEG-INTRON [Suspect]
     Indication: HEPATITIS C
     Dosage: 120 MCG; QW; SC
     Route: 058
     Dates: start: 20090330, end: 20090803
  2. RIBAVIRIN [Suspect]
     Indication: HEPATITIS C
     Dosage: 1200 MG; QD; PO
     Route: 048
     Dates: start: 20090330, end: 20090805
  3. ELTROMBOPAG (ELTROMBOPAG) [Suspect]
     Indication: THROMBOCYTOPENIA
     Dosage: 25 MG; QD; PO, 50 MG; QD; PO
     Route: 048
     Dates: start: 20090223, end: 20090309
  4. ELTROMBOPAG (ELTROMBOPAG) [Suspect]
     Indication: THROMBOCYTOPENIA
     Dosage: 25 MG; QD; PO, 50 MG; QD; PO
     Route: 048
     Dates: start: 20090310, end: 20090329
  5. BLINDED ELTROMBOPAG (ELTROMBOPAG) [Suspect]
     Indication: THROMBOCYTOPENIA
     Dosage: ; QD; PO, 100 MG; QD; PO
     Route: 048
     Dates: start: 20090330, end: 20090413
  6. BLINDED ELTROMBOPAG (ELTROMBOPAG) [Suspect]
     Indication: THROMBOCYTOPENIA
     Dosage: ; QD; PO, 100 MG; QD; PO
     Route: 048
     Dates: start: 20090414, end: 20090805

REACTIONS (2)
  - FLUID RETENTION [None]
  - HEPATIC FAILURE [None]
